FAERS Safety Report 9114731 (Version 1)
Quarter: 2013Q1

REPORT INFORMATION
  Report Type: Spontaneous
  Country: US (occurrence: US)
  Receive Date: 20130208
  Receipt Date: 20130208
  Transmission Date: 20140127
  Serious: No
  Sender: FDA-Public Use
  Company Number: US-BAYER-2013-013789

PATIENT
  Age: 48 Year
  Sex: Female
  Weight: 86.17 kg

DRUGS (3)
  1. CLIMARA [Suspect]
     Dosage: ONCE A WEEK
     Route: 062
     Dates: start: 20130126
  2. TRIAMTERENE [Concomitant]
     Indication: HYPERTENSION
     Dosage: DAILY DOSE 37 MG
     Route: 048
     Dates: start: 2008
  3. CYCLOBENZAPRINE [Concomitant]
     Indication: FIBROMYALGIA
     Dosage: DAILY DOSE 5 MG
     Route: 048
     Dates: start: 2003

REACTIONS (4)
  - Hot flush [Not Recovered/Not Resolved]
  - Feeling hot [Not Recovered/Not Resolved]
  - Hyperhidrosis [Not Recovered/Not Resolved]
  - Unevaluable event [None]
